FAERS Safety Report 12746516 (Version 1)
Quarter: 2016Q3

REPORT INFORMATION
  Report Type: Spontaneous
  Country: US (occurrence: US)
  Receive Date: 20160915
  Receipt Date: 20160915
  Transmission Date: 20161109
  Serious: Yes (Other)
  Sender: FDA-Public Use
  Company Number: None

PATIENT
  Age: 72 Year
  Sex: Female
  Weight: 97.2 kg

DRUGS (14)
  1. CRESTOR [Concomitant]
     Active Substance: ROSUVASTATIN CALCIUM
  2. TOPROL XL [Concomitant]
     Active Substance: METOPROLOL SUCCINATE
  3. EXEMESTANE. [Concomitant]
     Active Substance: EXEMESTANE
  4. VICODIN [Concomitant]
     Active Substance: ACETAMINOPHEN\HYDROCODONE BITARTRATE
  5. PROBENECID. [Suspect]
     Active Substance: PROBENECID
     Indication: BLOOD URIC ACID INCREASED
     Route: 048
     Dates: start: 20160808, end: 20160831
  6. ASPIRIN. [Concomitant]
     Active Substance: ASPIRIN
  7. GABAPENTIN. [Concomitant]
     Active Substance: GABAPENTIN
  8. ALLEGRA [Concomitant]
     Active Substance: FEXOFENADINE HYDROCHLORIDE
  9. FLONASE [Concomitant]
     Active Substance: FLUTICASONE PROPIONATE
  10. RABEPRAZOLE [Concomitant]
     Active Substance: RABEPRAZOLE
  11. ODANSETRON [Concomitant]
     Active Substance: ONDANSETRON
  12. VOLTAREN [Concomitant]
     Active Substance: DICLOFENAC SODIUM
  13. METAXALONE. [Concomitant]
     Active Substance: METAXALONE
  14. MICARDIS [Concomitant]
     Active Substance: TELMISARTAN

REACTIONS (3)
  - Blood test abnormal [None]
  - Abdominal pain upper [None]
  - Malaise [None]

NARRATIVE: CASE EVENT DATE: 20160901
